FAERS Safety Report 23033868 (Version 1)
Quarter: 2023Q4

REPORT INFORMATION
  Report Type: Spontaneous
  Country: FR (occurrence: FR)
  Receive Date: 20231005
  Receipt Date: 20231005
  Transmission Date: 20240109
  Serious: Yes (Hospitalization, Other)
  Sender: FDA-Public Use
  Company Number: FR-INCYTE CORPORATION-2023IN010176

PATIENT

DRUGS (5)
  1. PEMAZYRE [Suspect]
     Active Substance: PEMIGATINIB
     Indication: Cholangiocarcinoma
     Dosage: 13.5 MILLIGRAM (1ST WEEK)
     Route: 065
     Dates: start: 202302
  2. PEMAZYRE [Suspect]
     Active Substance: PEMIGATINIB
     Dosage: 9 MILLIGRAM, QD (2ND WEEK OF CYCLE)
     Route: 065
     Dates: end: 202309
  3. NIVOLUMAB [Concomitant]
     Active Substance: NIVOLUMAB
     Indication: Gene mutation
     Dosage: 20 CYCLES
     Route: 065
  4. FLUOROURACIL\LEUCOVORIN CALCIUM\OXALIPLATIN [Concomitant]
     Active Substance: FLUOROURACIL\LEUCOVORIN CALCIUM\OXALIPLATIN
     Indication: Product used for unknown indication
     Dosage: 9 CYCLES
     Route: 065
  5. FLUOROURACIL\IRINOTECAN\LEUCOVORIN [Concomitant]
     Active Substance: FLUOROURACIL\IRINOTECAN\LEUCOVORIN
     Indication: Product used for unknown indication
     Dosage: 30 CYCLES
     Route: 065

REACTIONS (2)
  - Toxic encephalopathy [Not Recovered/Not Resolved]
  - Fungal oesophagitis [Unknown]

NARRATIVE: CASE EVENT DATE: 20230501
